FAERS Safety Report 9632403 (Version 1)
Quarter: 2013Q4

REPORT INFORMATION
  Report Type: Spontaneous
  Country: US (occurrence: US)
  Receive Date: 20131018
  Receipt Date: 20131018
  Transmission Date: 20140711
  Serious: No
  Sender: FDA-Public Use
  Company Number: US-PFIZER INC-2013295261

PATIENT
  Sex: 0

DRUGS (1)
  1. SOMAVERT [Suspect]
     Dosage: UNK

REACTIONS (2)
  - Incorrect product storage [Unknown]
  - Drug ineffective [Unknown]
